FAERS Safety Report 9665680 (Version 2)
Quarter: 2013Q4

REPORT INFORMATION
  Report Type: Report from Study
  Country: BR (occurrence: BR)
  Receive Date: 20131104
  Receipt Date: 20131130
  Transmission Date: 20140711
  Serious: No
  Sender: FDA-Public Use
  Company Number: PHHY2013BR124263

PATIENT
  Sex: Female

DRUGS (5)
  1. DIOVAN TRIPLE [Suspect]
     Indication: HYPERTENSION
     Dosage: 1 DF (160/5/12.5 MG), DAILY
     Route: 048
  2. GLIFAGE [Concomitant]
     Indication: DIABETES MELLITUS
     Dosage: 850 MG, DAILY
     Route: 048
  3. GLIBENCLAMIDE [Concomitant]
     Indication: DIABETES MELLITUS
     Dosage: 2 DF (5 MG), DAILY
     Route: 048
  4. GALVUS [Concomitant]
     Indication: DIABETES MELLITUS
     Dosage: 50 MG, UNK
  5. SIMVASTATIN [Concomitant]
     Indication: BLOOD CHOLESTEROL INCREASED
     Dosage: 20 MG, DAILY
     Route: 048

REACTIONS (5)
  - Osteoporosis [Not Recovered/Not Resolved]
  - Osteoarthritis [Not Recovered/Not Resolved]
  - Fall [Recovered/Resolved]
  - Arthropathy [Not Recovered/Not Resolved]
  - Visual impairment [Unknown]
